FAERS Safety Report 17543703 (Version 1)
Quarter: 2020Q1

REPORT INFORMATION
  Report Type: Spontaneous
  Country: FR (occurrence: FR)
  Receive Date: 20200316
  Receipt Date: 20200316
  Transmission Date: 20200409
  Serious: Yes (Other)
  Sender: FDA-Public Use
  Company Number: FR-TEVA-2020-FR-1200304

PATIENT
  Age: 72 Year
  Sex: Female
  Weight: 65 kg

DRUGS (4)
  1. AZITHROMYCINE ANHYDRE [Suspect]
     Active Substance: AZITHROMYCIN ANHYDROUS
     Indication: LUNG DISORDER
     Dosage: 250 MILLIGRAM
     Route: 048
     Dates: start: 20191119
  2. DEXAMBUTOL 500 MG, COMPRIM? PELLICUL? [Suspect]
     Active Substance: ETHAMBUTOL HYDROCHLORIDE
     Indication: LUNG DISORDER
     Dosage: 2 DOSAGEFORM
     Route: 048
     Dates: start: 20191014
  3. VENLAFAXINE [Suspect]
     Active Substance: VENLAFAXINE HYDROCHLORIDE
     Indication: MIGRAINE
     Route: 048
     Dates: start: 20191119
  4. RIFADINE 300 MG, G?LULE [Suspect]
     Active Substance: RIFAMPIN
     Indication: LUNG DISORDER
     Dosage: 2 DOSAGEFORM
     Route: 048
     Dates: start: 20191014

REACTIONS (2)
  - Pruritus [Recovering/Resolving]
  - Mechanical urticaria [Recovering/Resolving]

NARRATIVE: CASE EVENT DATE: 20191220
